FAERS Safety Report 20433460 (Version 5)
Quarter: 2024Q1

REPORT INFORMATION
  Report Type: Report from Study
  Country: CN (occurrence: CN)
  Receive Date: 20220205
  Receipt Date: 20240313
  Transmission Date: 20240410
  Serious: Yes (Hospitalization, Other)
  Sender: FDA-Public Use
  Company Number: CN-Accord-252689

PATIENT
  Age: 50 Year
  Sex: Female
  Weight: 58 kg

DRUGS (24)
  1. CARBOPLATIN [Suspect]
     Active Substance: CARBOPLATIN
     Indication: Breast cancer stage II
     Dosage: DOSE: Q3W; INTRAVENOUS DRIP
     Route: 042
     Dates: start: 20211209, end: 20211209
  2. TRASTUZUMAB [Suspect]
     Active Substance: TRASTUZUMAB
     Indication: Breast cancer stage II
     Dosage: STRENGTH: 150 MG?DOSE: Q3W; INTRAVENOUS DRIP
     Route: 042
     Dates: start: 20211209, end: 20211209
  3. PACLITAXEL [Suspect]
     Active Substance: PACLITAXEL
     Indication: Breast cancer stage II
     Dosage: DOSE: Q3W; INTRAVENOUS DRIP
     Route: 042
     Dates: start: 20211209, end: 20211209
  4. PERTUZUMAB [Suspect]
     Active Substance: PERTUZUMAB
     Indication: Breast cancer stage II
     Dosage: DOSE: Q3W; INTRAVENOUS DRIP
     Route: 042
     Dates: start: 20211209, end: 20211209
  5. DIPHENHYDRAMINE [Concomitant]
     Active Substance: DIPHENHYDRAMINE
     Dates: start: 20211231, end: 20211231
  6. DEXAMETHASONE SODIUM PHOSPHATE [Concomitant]
     Active Substance: DEXAMETHASONE PHOSPHATE\DEXAMETHASONE SODIUM PHOSPHATE
     Dates: start: 20211231, end: 20211231
  7. DOLASETRON MESILATE [Concomitant]
     Dates: start: 20211231, end: 20211231
  8. VITAMIN B6 [Concomitant]
     Active Substance: PYRIDOXINE HYDROCHLORIDE
     Dates: start: 20211231, end: 20211231
  9. SHEN MAI QI [Concomitant]
     Dates: start: 20211231, end: 20211231
  10. VITAMIN B6 [Concomitant]
     Active Substance: PYRIDOXINE HYDROCHLORIDE
     Dates: start: 20211231, end: 20211231
  11. RABEPRAZOLE SODIUM [Concomitant]
     Active Substance: RABEPRAZOLE SODIUM
     Dates: start: 20211231, end: 20211231
  12. FOSAPREPITANT DIMEGLUMINE [Concomitant]
     Active Substance: FOSAPREPITANT DIMEGLUMINE
     Dates: start: 20211231, end: 20211231
  13. TRASTUZUMAB [Suspect]
     Active Substance: TRASTUZUMAB
     Indication: Breast cancer stage II
     Dosage: STRENGTH: 150 MG?DOSE: Q3W; INTRAVENOUS DRIP
     Route: 042
     Dates: start: 20211231, end: 20211231
  14. TRASTUZUMAB [Suspect]
     Active Substance: TRASTUZUMAB
     Indication: Breast cancer stage II
     Dosage: STRENGTH: 150 MG?DOSE: Q3W; INTRAVENOUS DRIP
     Route: 042
     Dates: start: 20220121, end: 20220121
  15. CARBOPLATIN [Suspect]
     Active Substance: CARBOPLATIN
     Indication: Breast cancer stage II
     Dosage: DOSE: Q3W; INTRAVENOUS DRIP
     Route: 042
     Dates: start: 20211231, end: 20211231
  16. CARBOPLATIN [Suspect]
     Active Substance: CARBOPLATIN
     Indication: Breast cancer stage II
     Dosage: DOSE: Q3W; INTRAVENOUS DRIP
     Route: 042
     Dates: start: 20220121, end: 20220121
  17. PACLITAXEL [Suspect]
     Active Substance: PACLITAXEL
     Indication: Breast cancer stage II
     Dosage: DOSE: Q3W; INTRAVENOUS DRIP
     Route: 042
     Dates: start: 20211231, end: 20211231
  18. PACLITAXEL [Suspect]
     Active Substance: PACLITAXEL
     Indication: Breast cancer stage II
     Dosage: DOSE: Q3W; INTRAVENOUS DRIP
     Route: 042
     Dates: start: 20220121, end: 20220121
  19. PERTUZUMAB [Suspect]
     Active Substance: PERTUZUMAB
     Indication: Breast cancer stage II
     Dosage: DOSE: Q3W; INTRAVENOUS DRIP
     Route: 042
     Dates: start: 20211231, end: 20211231
  20. PERTUZUMAB [Suspect]
     Active Substance: PERTUZUMAB
     Indication: Breast cancer stage II
     Dosage: DOSE: Q3W; INTRAVENOUS DRIP
     Route: 042
     Dates: start: 20220121, end: 20220121
  21. CARBOPLATIN [Suspect]
     Active Substance: CARBOPLATIN
     Indication: Breast cancer stage II
     Dosage: DOSE: Q3W; INTRAVENOUS DRIP
     Route: 042
     Dates: start: 20220211, end: 20220211
  22. TRASTUZUMAB [Suspect]
     Active Substance: TRASTUZUMAB
     Indication: Breast cancer stage II
     Dosage: STRENGTH: 150 MG?DOSE: Q3W; INTRAVENOUS DRIP
     Route: 042
     Dates: start: 20220211, end: 20220211
  23. PACLITAXEL [Suspect]
     Active Substance: PACLITAXEL
     Indication: Breast cancer stage II
     Dosage: DOSE: Q3W; INTRAVENOUS DRIP
     Route: 042
     Dates: start: 20220211, end: 20220211
  24. PERTUZUMAB [Suspect]
     Active Substance: PERTUZUMAB
     Indication: Breast cancer stage II
     Dosage: DOSE: Q3W; INTRAVENOUS DRIP
     Route: 042
     Dates: start: 20220211, end: 20220211

REACTIONS (2)
  - Asthma [Recovered/Resolved]
  - Agranulocytosis [Recovered/Resolved]

NARRATIVE: CASE EVENT DATE: 20220104
